FAERS Safety Report 25905875 (Version 1)
Quarter: 2025Q4

REPORT INFORMATION
  Report Type: Spontaneous
  Country: US (occurrence: US)
  Receive Date: 20251010
  Receipt Date: 20251010
  Transmission Date: 20260118
  Serious: Yes (Other)
  Sender: ACCORD
  Company Number: US-MLMSERVICE-20250922-PI652727-00176-2

PATIENT
  Age: 66 Year
  Sex: Female

DRUGS (7)
  1. HYDROCHLOROTHIAZIDE [Suspect]
     Active Substance: HYDROCHLOROTHIAZIDE
     Indication: Product used for unknown indication
  2. AZELASTINE [Concomitant]
     Active Substance: AZELASTINE
     Route: 045
  3. CETIRIZINE [Concomitant]
     Active Substance: CETIRIZINE HYDROCHLORIDE
  4. GABAPENTIN [Concomitant]
     Active Substance: GABAPENTIN
  5. LABETALOL [Concomitant]
     Active Substance: LABETALOL
     Indication: Hypertension
  6. METFORMIN [Concomitant]
     Active Substance: METFORMIN HYDROCHLORIDE
     Indication: Type 2 diabetes mellitus
  7. SPIRONOLACTONE [Concomitant]
     Active Substance: SPIRONOLACTONE

REACTIONS (4)
  - Cutaneous collagenous vasculopathy [Recovered/Resolved]
  - Disease recurrence [Recovered/Resolved]
  - Dehydration [Unknown]
  - Muscle spasms [Unknown]
